FAERS Safety Report 9800890 (Version 1)
Quarter: 2014Q1

REPORT INFORMATION
  Report Type: Report from Study
  Country: KR (occurrence: KR)
  Receive Date: 20140107
  Receipt Date: 20140107
  Transmission Date: 20141002
  Serious: Yes (Hospitalization)
  Sender: FDA-Public Use
  Company Number: KR-BAYER-2014-000048

PATIENT
  Age: 68 Year
  Sex: Female
  Weight: 61 kg

DRUGS (18)
  1. NEXAVAR [Suspect]
     Indication: HEPATOCELLULAR CARCINOMA
     Dosage: 400 MG, BID
     Dates: start: 20110902, end: 20110925
  2. NEXAVAR [Suspect]
     Indication: HEPATOCELLULAR CARCINOMA
     Dosage: 400 MG, QD
     Dates: start: 20110926, end: 20111125
  3. SEBIVO [Concomitant]
     Dosage: 600 MG DAILY
     Dates: start: 20110825, end: 20120208
  4. XANAX [Concomitant]
     Dosage: 0.75 MG DAILY
     Dates: start: 20110822, end: 20120208
  5. OXYCONTIN [Concomitant]
     Indication: ANALGESIC THERAPY
     Dosage: 20 MG DAILY
     Dates: start: 20110829, end: 20120208
  6. GODEX [Concomitant]
     Dosage: 3C DAILY
     Dates: start: 20110821, end: 20120208
  7. URSA [Concomitant]
     Dosage: 600 MG DAILY
     Dates: start: 20110821, end: 20120208
  8. MEGACE [Concomitant]
     Indication: APPETITE DISORDER
     Dosage: 80 MG DAILY
     Dates: start: 20110821, end: 20120208
  9. ECABET [Concomitant]
     Indication: FUNCTIONAL GASTROINTESTINAL DISORDER
     Dosage: 2 G
     Dates: start: 20110825, end: 20111109
  10. ITOPRIDE [Concomitant]
     Indication: FUNCTIONAL GASTROINTESTINAL DISORDER
     Dosage: 100 MG DAILY
     Dates: start: 20110825, end: 20111103
  11. TRIDOL [Concomitant]
     Indication: ANALGESIC THERAPY
     Dosage: 150 MG DAILY
     Dates: start: 20110825, end: 20110906
  12. PHENYLBUTAZONE [Concomitant]
     Indication: MUSCULOSKELETAL PAIN
     Dosage: 150 MG
     Dates: start: 20110902, end: 20110906
  13. POLYBUTIN S.R [Concomitant]
     Indication: IRRITABLE BOWEL SYNDROME
     Dosage: 300 MG DAILY
     Dates: start: 20111103, end: 20120208
  14. POLYBUTIN S.R [Concomitant]
     Indication: FUNCTIONAL GASTROINTESTINAL DISORDER
  15. DUPHALAC [LACTULOSE] [Concomitant]
     Indication: PROPHYLAXIS
     Dosage: 60 ML DAILY
     Dates: start: 20111108, end: 20111110
  16. ULTRACET [Concomitant]
     Indication: ANALGESIC THERAPY
     Dosage: 3 T DAILY
     Dates: start: 20111026, end: 20111104
  17. ULTRACET [Concomitant]
     Indication: ANTIPYRESIS
  18. LEVOSULPIRIDE [Concomitant]
     Indication: ABDOMINAL DISTENSION
     Dosage: 75 MG DAILY
     Dates: start: 20111025, end: 20111106

REACTIONS (4)
  - Abdominal distension [Not Recovered/Not Resolved]
  - Abdominal pain [Not Recovered/Not Resolved]
  - Palmar-plantar erythrodysaesthesia syndrome [Recovered/Resolved]
  - Pyrexia [Recovered/Resolved]
